FAERS Safety Report 10040862 (Version 1)
Quarter: 2014Q1

REPORT INFORMATION
  Report Type: Spontaneous
  Country: US (occurrence: None)
  Receive Date: 20140326
  Receipt Date: 20140326
  Transmission Date: 20141002
  Serious: Yes (Other)
  Sender: FDA-Public Use
  Company Number: None

PATIENT
  Age: 58 Year
  Sex: Female
  Weight: 63.5 kg

DRUGS (1)
  1. CIPROFLOXACIN 250 MG [Suspect]
     Indication: URINARY TRACT INFECTION
     Route: 048
     Dates: start: 20140307, end: 20140313

REACTIONS (17)
  - Muscular weakness [None]
  - Fatigue [None]
  - Dyskinesia [None]
  - Muscle twitching [None]
  - Tremor [None]
  - Visual impairment [None]
  - Vision blurred [None]
  - Heart rate irregular [None]
  - Insomnia [None]
  - Body temperature fluctuation [None]
  - Nightmare [None]
  - Muscle spasms [None]
  - Arthropathy [None]
  - Anxiety [None]
  - Depression [None]
  - Balance disorder [None]
  - Hypopnoea [None]
